FAERS Safety Report 9671863 (Version 1)
Quarter: 2013Q4

REPORT INFORMATION
  Report Type: Spontaneous
  Country: US (occurrence: US)
  Receive Date: 20131106
  Receipt Date: 20131106
  Transmission Date: 20140711
  Serious: No
  Sender: FDA-Public Use
  Company Number: US-ENDO PHARMACEUTICALS INC.-SPIR20130007

PATIENT
  Age: 65 Year
  Sex: Female

DRUGS (1)
  1. SPIRONOLACTONE TABLETS 100MG [Suspect]
     Indication: HORMONE LEVEL ABNORMAL
     Route: 048
     Dates: start: 20130604

REACTIONS (3)
  - Paraesthesia [Unknown]
  - Oedema [Unknown]
  - Drug ineffective [Unknown]
